FAERS Safety Report 5755413-2 (Version None)
Quarter: 2008Q2

REPORT INFORMATION
  Report Type: 
  Country: None (occurrence: None)
  Receive Date: 20080529
  Receipt Date: 20080529
  Transmission Date: 20081010
  Serious: Yes (Life-Threatening)
  Sender: FDA-Public Use
  Company Number: None

PATIENT
  Age: 57 Year
  Sex: Female
  Weight: 70.7611 kg

DRUGS (2)
  1. THEOPHYLLINE [Suspect]
     Indication: ASTHMA
     Dosage: 1 TAB BID PO
     Route: 048
     Dates: start: 20080521, end: 20080522
  2. THEOPHYLLINE [Suspect]
     Indication: CHRONIC OBSTRUCTIVE PULMONARY DISEASE
     Dosage: 1 TAB BID PO
     Route: 048
     Dates: start: 20080521, end: 20080522

REACTIONS (6)
  - CRYING [None]
  - DYSPNOEA [None]
  - FEAR [None]
  - PANIC REACTION [None]
  - PARAESTHESIA [None]
  - THERAPEUTIC RESPONSE UNEXPECTED WITH DRUG SUBSTITUTION [None]
